FAERS Safety Report 8101092-9 (Version None)
Quarter: 2012Q1

REPORT INFORMATION
  Report Type: 
  Country: None (occurrence: None)
  Receive Date: 20120129
  Receipt Date: 20110908
  Transmission Date: 20120608
  Serious: No
  Sender: FDA-Public Use
  Company Number: US-ABBOTT-11P-163-0852806-00

PATIENT
  Age: 55 Year
  Sex: Female

DRUGS (4)
  1. MULTI-VITAMIN [Concomitant]
     Indication: ROUTINE HEALTH MAINTENANCE
  2. OXAPROZIN [Concomitant]
     Indication: ARTHRITIS
  3. HUMIRA [Suspect]
     Indication: PSORIATIC ARTHROPATHY
     Dates: start: 20090901, end: 20110701
  4. VITAMIN B-12 [Concomitant]
     Indication: PERNICIOUS ANAEMIA
     Dosage: PILL

REACTIONS (2)
  - URINARY TRACT INFECTION [None]
  - SALMONELLOSIS [None]
